FAERS Safety Report 16960155 (Version 4)
Quarter: 2020Q3

REPORT INFORMATION
  Report Type: Spontaneous
  Country: NL (occurrence: NL)
  Receive Date: 20191025
  Receipt Date: 20200706
  Transmission Date: 20201102
  Serious: Yes (Hospitalization)
  Sender: FDA-Public Use
  Company Number: NL-TEVA-2019-NL-1127084

PATIENT
  Age: 59 Year
  Sex: Female
  Weight: 61 kg

DRUGS (4)
  1. HYDROCHLOORTHIAZIDE 12,5 MG [Concomitant]
     Active Substance: HYDROCHLOROTHIAZIDE
     Dosage: 12 MILLIGRAM DAILY; THERAPY END DATE; ASKU
     Dates: start: 2013
  2. DICLOFENAC MAAGSAPRESISTENTE TABLET, 50 MG (MILLIGRAM) [Suspect]
     Active Substance: DICLOFENAC SODIUM
     Indication: PAIN
     Dosage: 100 MILLIGRAM DAILY;
     Route: 065
     Dates: start: 20190924, end: 20190926
  3. OMEPRAZOL 40 MG [Concomitant]
     Active Substance: OMEPRAZOLE
     Dates: start: 20190924, end: 20190927
  4. PARACETAMOL, 500 MG [Concomitant]
     Dosage: 4000 MILLIGRAM DAILY;
     Dates: start: 20190924

REACTIONS (1)
  - Haemorrhage [Recovered/Resolved]

NARRATIVE: CASE EVENT DATE: 20190925
